FAERS Safety Report 11893394 (Version 1)
Quarter: 2016Q1

REPORT INFORMATION
  Report Type: Spontaneous
  Country: GB (occurrence: GB)
  Receive Date: 20160106
  Receipt Date: 20160106
  Transmission Date: 20160526
  Serious: Yes (Other)
  Sender: FDA-Public Use
  Company Number: GB-B.I. PHARMACEUTICALS,INC./RIDGEFIELD-2015-BI-73216UK

PATIENT
  Age: 30 Year
  Sex: Female
  Weight: 89 kg

DRUGS (6)
  1. NELFINAVIR [Suspect]
     Active Substance: NELFINAVIR
     Indication: HIV INFECTION
     Dosage: 2.5 G
     Route: 065
  2. VIRAMUNE [Suspect]
     Active Substance: NEVIRAPINE
     Indication: HIV INFECTION
     Dosage: 400 MG
     Route: 048
     Dates: start: 1998, end: 19990614
  3. VIDEX [Suspect]
     Active Substance: DIDANOSINE
     Indication: HIV INFECTION
     Dosage: 400 MG
     Route: 048
     Dates: start: 19990707
  4. ZERIT [Suspect]
     Active Substance: STAVUDINE
     Indication: HIV INFECTION
     Dosage: 80 MG
     Route: 048
     Dates: start: 19990707
  5. ZIDOVUDINE. [Concomitant]
     Active Substance: ZIDOVUDINE
     Indication: PRODUCT USED FOR UNKNOWN INDICATION
     Dosage: 600 MG
     Route: 048
     Dates: start: 19990302, end: 19990604
  6. LAMIVUDINE. [Concomitant]
     Active Substance: LAMIVUDINE
     Indication: PRODUCT USED FOR UNKNOWN INDICATION
     Dosage: 300 MG
     Route: 048
     Dates: start: 1998, end: 19990614

REACTIONS (5)
  - Caesarean section [Unknown]
  - Pre-eclampsia [Recovered/Resolved]
  - Pregnancy [Recovered/Resolved]
  - HELLP syndrome [Unknown]
  - Normal newborn [Unknown]

NARRATIVE: CASE EVENT DATE: 19990828
